FAERS Safety Report 5370099-7 (Version None)
Quarter: 2007Q2

REPORT INFORMATION
  Report Type: 
  Country: None (occurrence: None)
  Receive Date: 20070626
  Receipt Date: 20070606
  Transmission Date: 20071010
  Serious: Yes (Death, Life-Threatening, Hospitalization, Other)
  Sender: FDA-Public Use
  Company Number: ES-JNJFOC-20051003399

PATIENT
  Age: 35 Year
  Sex: Male

DRUGS (7)
  1. RISPERDAL [Suspect]
     Indication: MENTAL DISORDER
     Dosage: USED LONG TERM
     Route: 048
  2. CIPROFLOXACIN HYDROCHLORIDE [Interacting]
     Indication: URINARY TRACT INFECTION
     Dosage: REPORTED AS 1G/D2
     Route: 048
  3. AUGMENTIN '125' [Interacting]
     Indication: RESPIRATORY TRACT INFECTION
     Route: 042
  4. SERTRALINE HYDROCHLORIDE [Interacting]
     Indication: DYSTHYMIC DISORDER
     Dosage: USED LONG TERM
     Route: 048
  5. SINOGAN [Interacting]
     Indication: MENTAL DISORDER
     Dosage: LONG TERM USE
     Route: 048
  6. CLONAZEPAM [Interacting]
     Indication: MENTAL DISORDER
     Dosage: USED LONG TERM
     Route: 048
  7. OPIREN FLAS [Concomitant]

REACTIONS (4)
  - AGRANULOCYTOSIS [None]
  - DRUG INTERACTION [None]
  - PNEUMONIA [None]
  - PNEUMONIA ASPIRATION [None]
